FAERS Safety Report 9979486 (Version 2)
Quarter: 2014Q1

REPORT INFORMATION
  Report Type: Report from Study
  Country: US (occurrence: US)
  Receive Date: 20140306
  Receipt Date: 20140306
  Transmission Date: 20141002
  Serious: Yes (Hospitalization, Other)
  Sender: FDA-Public Use
  Company Number: US-ABBVIE-13P-163-1172930-00

PATIENT
  Sex: Male
  Weight: 77.18 kg

DRUGS (8)
  1. HUMIRA [Suspect]
     Indication: CROHN^S DISEASE
     Dates: start: 2010, end: 2011
  2. HUMIRA [Suspect]
     Dates: start: 201203, end: 20130715
  3. FLONASE [Concomitant]
     Indication: PRODUCT USED FOR UNKNOWN INDICATION
  4. B12 [Concomitant]
     Indication: PRODUCT USED FOR UNKNOWN INDICATION
  5. ZEPHYR [Concomitant]
     Indication: ANAEMIA
  6. MULTIVITAMIN [Concomitant]
     Indication: PRODUCT USED FOR UNKNOWN INDICATION
  7. PROBIOTIC [Concomitant]
     Indication: PRODUCT USED FOR UNKNOWN INDICATION
  8. MERCAPTOPURINE [Concomitant]
     Indication: CROHN^S DISEASE
     Dates: start: 20111101

REACTIONS (4)
  - Herpes zoster [Recovered/Resolved]
  - Psoriasis [Unknown]
  - Recurring skin boils [Recovered/Resolved]
  - Scar [Recovered/Resolved with Sequelae]
